FAERS Safety Report 22542037 (Version 1)
Quarter: 2023Q2

REPORT INFORMATION
  Report Type: Spontaneous
  Country: CN (occurrence: None)
  Receive Date: 20230609
  Receipt Date: 20230609
  Transmission Date: 20230721
  Serious: Yes (Other)
  Sender: FDA-Public Use
  Company Number: 2023A134062

PATIENT
  Age: 13 Year
  Sex: Female

DRUGS (4)
  1. SEROQUEL [Suspect]
     Active Substance: QUETIAPINE FUMARATE
     Indication: Suicide attempt
     Dosage: 700.0MG UNKNOWN
     Route: 048
     Dates: start: 20230510, end: 20230510
  2. LORAZEPAM [Suspect]
     Active Substance: LORAZEPAM
     Indication: Suicide attempt
     Dosage: 30.0MG UNKNOWN
     Route: 048
     Dates: start: 20230510, end: 20230510
  3. OLANZAPINE [Suspect]
     Active Substance: OLANZAPINE
     Indication: Suicide attempt
     Dosage: 140.0MG UNKNOWN
     Dates: start: 20230510, end: 20230510
  4. SERTRALINE HYDROCHLORIDE [Suspect]
     Active Substance: SERTRALINE HYDROCHLORIDE
     Indication: Suicide attempt
     Dosage: 700.0MG UNKNOWN
     Route: 048
     Dates: start: 20230510, end: 20230510

REACTIONS (3)
  - Intentional overdose [Recovering/Resolving]
  - Loss of consciousness [Recovering/Resolving]
  - Aspiration [Recovering/Resolving]

NARRATIVE: CASE EVENT DATE: 20230510
